FAERS Safety Report 17647088 (Version 2)
Quarter: 2020Q2

REPORT INFORMATION
  Report Type: Spontaneous
  Country: JP (occurrence: JP)
  Receive Date: 20200408
  Receipt Date: 20200520
  Transmission Date: 20200713
  Serious: Yes (Life-Threatening, Other)
  Sender: FDA-Public Use
  Company Number: JP-PFIZER INC-2020139839

PATIENT
  Age: 74 Year
  Sex: Female
  Weight: 57 kg

DRUGS (3)
  1. FEMARA [Concomitant]
     Active Substance: LETROZOLE
     Dosage: 4 DF, 2X/DAY
     Dates: end: 20191226
  2. S-1TAIHO OD [Concomitant]
     Active Substance: GIMERACIL\OTERACIL\TEGAFUR
     Dosage: UNK, CYCLIC (4 TABLETS TWICE DAILY, AFTER BREAKFAST AND DINNER ON A 2 WEEKS ON/2 WEEKS OFF)
  3. IBRANCE [Suspect]
     Active Substance: PALBOCICLIB
     Indication: BREAST CANCER FEMALE
     Dosage: 125 MG, 1X/DAY
     Route: 048
     Dates: start: 20191226, end: 20200110

REACTIONS (3)
  - Bone marrow failure [Recovered/Resolved]
  - Neoplasm progression [Unknown]
  - Localised infection [Unknown]

NARRATIVE: CASE EVENT DATE: 20191227
